FAERS Safety Report 8832440 (Version 2)
Quarter: 2013Q1

REPORT INFORMATION
  Report Type: Spontaneous
  Country: US (occurrence: None)
  Receive Date: 20121005
  Receipt Date: 20121212
  Transmission Date: 20140127
  Serious: Yes (Hospitalization)
  Sender: FDA-Public Use
  Company Number: VAL_00873_2012

PATIENT
  Sex: Female

DRUGS (2)
  1. LOPRESSOR [Suspect]
     Indication: PRODUCT USED FOR UNKNOWN INDICATION
     Dosage: (DF)
  2. COPAXONE [Suspect]
     Indication: MULTIPLE SCLEROSIS
     Dosage: (DF)
     Dates: start: 20120319

REACTIONS (3)
  - Migraine [None]
  - Blood pressure diastolic decreased [None]
  - Fatigue [None]
